FAERS Safety Report 5222958-3 (Version None)
Quarter: 2007Q1

REPORT INFORMATION
  Report Type: 
  Country: None (occurrence: None)
  Receive Date: 20070124
  Receipt Date: 20070112
  Transmission Date: 20070707
  Serious: Yes (Hospitalization)
  Sender: FDA-Public Use
  Company Number: 2007-152908-NL

PATIENT
  Age: 53 Year
  Sex: Female

DRUGS (6)
  1. DEXAMETHASONE [Suspect]
     Indication: CHEMOTHERAPY
     Dosage: INTRAVENOUS (NOS)
     Route: 042
     Dates: start: 20060929, end: 20060929
  2. GEMCITABINE [Concomitant]
  3. GRANISETRON [Concomitant]
  4. ONDANSETRON [Concomitant]
  5. PALONOSETRON [Concomitant]
  6. SENNA [Concomitant]

REACTIONS (5)
  - BLOOD PRESSURE INCREASED [None]
  - CHILLS [None]
  - PYREXIA [None]
  - TACHYCARDIA [None]
  - TREMOR [None]
